FAERS Safety Report 7285465-2 (Version None)
Quarter: 2011Q1

REPORT INFORMATION
  Report Type: 
  Country: None (occurrence: None)
  Receive Date: 20110201
  Receipt Date: 20110125
  Transmission Date: 20110831
  Serious: Yes (Death)
  Sender: FDA-Public Use
  Company Number: B0696985A

PATIENT
  Age: 59 Year
  Sex: Female

DRUGS (6)
  1. STEM CELL TRANSPLANT. [Concomitant]
  2. CYTARABINE [Suspect]
     Dosage: 190 MGTWIICE PER DAY / INTRAVENOUS
     Route: 042
  3. ETOPOSIDE [Suspect]
     Indication: MANTLE CELL LYMPHOMA
     Dosage: 190 MGTWIICE PER DAY / INTRAVENOUS
     Route: 042
  4. MELPHALAN UNSPECIFIED INJECTABLE (GENERIC) (MELPHALAN) [Suspect]
     Indication: MANTLE CELL LYMPHOMA
     Dosage: 256 MG/INTRAVENOUS
     Route: 042
  5. CARMUSTINE [Suspect]
     Indication: MANTLE CELL LYMPHOMA
     Dosage: 570 MG/ INTRAVENOUS
     Route: 042
  6. CARMUSTINE [Suspect]
     Indication: STEM CELL TRANSPLANT
     Dosage: 570 MG/ INTRAVENOUS
     Route: 042

REACTIONS (6)
  - BRADYCARDIA [None]
  - PNEUMOTHORAX [None]
  - PULMONARY OEDEMA [None]
  - CARDIAC ARREST [None]
  - RESPIRATORY TRACT HAEMORRHAGE [None]
  - VENTRICULAR TACHYCARDIA [None]
